FAERS Safety Report 13422266 (Version 1)
Quarter: 2017Q2

REPORT INFORMATION
  Report Type: Spontaneous
  Country: US (occurrence: US)
  Receive Date: 20170407
  Receipt Date: 20170407
  Transmission Date: 20170830
  Serious: Yes (Life-Threatening, Hospitalization)
  Sender: FDA-Public Use
  Company Number: None

PATIENT
  Sex: Male

DRUGS (2)
  1. IMIPENEM [Suspect]
     Active Substance: IMIPENEM
     Indication: KLEBSIELLA INFECTION
     Dosage: 4 TIMES A DAY INTRAVENOUS (NOT OTHERWISE SPECIFIED)
     Route: 042
     Dates: start: 20170226, end: 20170228
  2. IMIPENEM [Suspect]
     Active Substance: IMIPENEM
     Indication: BACTERAEMIA
     Dosage: 4 TIMES A DAY INTRAVENOUS (NOT OTHERWISE SPECIFIED)
     Route: 042
     Dates: start: 20170226, end: 20170228

REACTIONS (7)
  - Toxic encephalopathy [None]
  - Postictal state [None]
  - Hypoxic-ischaemic encephalopathy [None]
  - Seizure [None]
  - Memory impairment [None]
  - Lethargy [None]
  - Metabolic encephalopathy [None]

NARRATIVE: CASE EVENT DATE: 20170228
